FAERS Safety Report 10953948 (Version 1)
Quarter: 2015Q1

REPORT INFORMATION
  Report Type: Spontaneous
  Country: US (occurrence: None)
  Receive Date: 20150226
  Receipt Date: 20150226
  Transmission Date: 20150721
  Serious: Yes (Other)
  Sender: FDA-Public Use
  Company Number: TPA2010A00813

PATIENT
  Age: 72 Year
  Sex: Male
  Weight: 68.04 kg

DRUGS (8)
  1. LIPITOR [Concomitant]
     Active Substance: ATORVASTATIN CALCIUM
  2. STARLIX [Concomitant]
     Active Substance: NATEGLINIDE
  3. ZETIA (EZBETIMIBE) [Concomitant]
  4. DIOVAN [Concomitant]
     Active Substance: VALSARTAN
  5. ULORIC [Suspect]
     Active Substance: FEBUXOSTAT
     Indication: GOUT
     Dosage: 1 IN 1 DAY
     Route: 048
     Dates: start: 20091219, end: 20100211
  6. GLUCOPHAGE XR (METFORMIN) [Concomitant]
  7. JANUVIA (ALL OTHER THERAPEUTIC PRODUCTS) [Concomitant]
  8. LOVAZA (ALL OTHER THERAPEUTIC PRODUCTS) [Concomitant]

REACTIONS (1)
  - Renal failure [None]

NARRATIVE: CASE EVENT DATE: 20100211
